FAERS Safety Report 5946856-2 (Version None)
Quarter: 2008Q4

REPORT INFORMATION
  Report Type: 
  Country: None (occurrence: None)
  Receive Date: 20081107
  Receipt Date: 20081107
  Transmission Date: 20090506
  Serious: Yes (Hospitalization)
  Sender: FDA-Public Use
  Company Number: None

PATIENT
  Age: 52 Year
  Sex: Male
  Weight: 96.6162 kg

DRUGS (10)
  1. PANITUMUMAB 6.0MG/KG [Suspect]
     Indication: HEAD AND NECK CANCER
     Dosage: 580MG Q3WK IV
     Route: 042
     Dates: start: 20081021, end: 20081024
  2. DOCETAXEL [Suspect]
     Indication: HEAD AND NECK CANCER
     Dosage: 75MG/M2 Q3WK IV
     Route: 042
  3. CISPLATIN [Suspect]
     Dosage: 100MG/M2 Q3WK IV
     Route: 042
  4. FLUOROURACIL [Suspect]
     Dosage: 800MG/M2 1-4 Q3WK IV
     Route: 042
  5. FERROUS SULFATE [Concomitant]
  6. OMEPRAZOLE [Concomitant]
  7. ACETAMINOPHEN [Concomitant]
  8. OXYCODONE HCL [Concomitant]
  9. CIPROFLOXACIN [Concomitant]
  10. DILTIAZEM HCL [Concomitant]

REACTIONS (6)
  - CATHETER SITE ERYTHEMA [None]
  - DERMATITIS ACNEIFORM [None]
  - FEBRILE NEUTROPENIA [None]
  - HYPOKALAEMIA [None]
  - HYPONATRAEMIA [None]
  - WHITE BLOOD CELL COUNT DECREASED [None]
